FAERS Safety Report 24749780 (Version 4)
Quarter: 2025Q1

REPORT INFORMATION
  Report Type: Report from Study
  Country: CN (occurrence: CN)
  Receive Date: 20241218
  Receipt Date: 20250124
  Transmission Date: 20250408
  Serious: Yes (Hospitalization)
  Sender: PFIZER
  Company Number: CN-PFIZER INC-PV202400162449

PATIENT
  Age: 68 Year
  Sex: Female
  Weight: 68 kg

DRUGS (11)
  1. INVESTIGATIONAL PRODUCT [Suspect]
     Active Substance: INVESTIGATIONAL PRODUCT
     Indication: Breast cancer
     Dosage: UNK, BID
     Route: 048
     Dates: start: 20230811, end: 20241112
  2. TUCATINIB [Suspect]
     Active Substance: TUCATINIB
     Indication: Breast cancer
     Dosage: UNK, BID
     Route: 048
     Dates: start: 20230811, end: 20241112
  3. PERTUZUMAB [Suspect]
     Active Substance: PERTUZUMAB
     Indication: Breast cancer
     Dosage: 420 MG, EVERY 3 WEEKS (Q3W)
     Route: 041
     Dates: start: 20230811, end: 20241102
  4. TRASTUZUMAB [Suspect]
     Active Substance: TRASTUZUMAB
     Indication: Breast cancer
     Dosage: 408 MG, EVERY 3 WEEKS (Q3W)
     Route: 041
     Dates: start: 20230811, end: 20241102
  5. METHYLPREDNISOLONE [Suspect]
     Active Substance: METHYLPREDNISOLONE
     Indication: Dermatitis allergic
     Dosage: 8 MG, QD
     Route: 048
     Dates: start: 20241112, end: 20241206
  6. LEVOCETIRIZINE DIHYDROCHLORIDE [Suspect]
     Active Substance: LEVOCETIRIZINE DIHYDROCHLORIDE
     Indication: Dermatitis allergic
     Dosage: 5 MG, QD
     Route: 048
     Dates: start: 20241108, end: 20241111
  7. LEVOCETIRIZINE DIHYDROCHLORIDE [Suspect]
     Active Substance: LEVOCETIRIZINE DIHYDROCHLORIDE
     Dosage: 5 MG, 1X/DAY
     Route: 048
     Dates: start: 20241123, end: 20241206
  8. EBASTINE [Suspect]
     Active Substance: EBASTINE
     Indication: Dermatitis allergic
     Dosage: 20 MG, QN
     Route: 048
     Dates: start: 20241123, end: 20241206
  9. HERBALS [Suspect]
     Active Substance: HERBALS
     Indication: Dermatitis allergic
     Dosage: 2 G, 3X/DAY
     Route: 048
     Dates: start: 20241123, end: 20241129
  10. LORATADINE [Suspect]
     Active Substance: LORATADINE
     Indication: Dermatitis allergic
     Dosage: 10 MG, 1X/DAY(QD)
     Route: 048
     Dates: start: 20241208, end: 20241211
  11. EXEMESTANE [Concomitant]
     Active Substance: EXEMESTANE
     Indication: Breast cancer
     Dosage: 25 MG, QD
     Route: 048
     Dates: start: 20230902, end: 20241212

REACTIONS (1)
  - Gamma-glutamyltransferase increased [Recovering/Resolving]

NARRATIVE: CASE EVENT DATE: 20241211
